FAERS Safety Report 8524896-7 (Version None)
Quarter: 2012Q3

REPORT INFORMATION
  Report Type: 
  Country: None (occurrence: None)
  Receive Date: 20120720
  Receipt Date: 20120717
  Transmission Date: 20120928
  Serious: Yes (Life-Threatening, Hospitalization, Disabling)
  Sender: FDA-Public Use
  Company Number: US-B.I. PHARMACEUTICALS,INC./RIDGEFIELD-2012-BP-15869BP

PATIENT
  Sex: Female
  Weight: 55.3 kg

DRUGS (4)
  1. PRADAXA [Suspect]
     Indication: TRANSIENT ISCHAEMIC ATTACK
  2. AMLODIPINE [Concomitant]
     Indication: HYPERTENSION
     Dosage: 5 MG
  3. PRADAXA [Suspect]
     Indication: ATRIAL FIBRILLATION
     Dosage: 300 MG
     Dates: start: 20110401, end: 20120101
  4. NORVASC [Concomitant]
     Dosage: 5 MG

REACTIONS (4)
  - TETANY [None]
  - CEREBROVASCULAR ACCIDENT [None]
  - NECROSIS [None]
  - PARATHYROID HAEMORRHAGE [None]
